FAERS Safety Report 19154818 (Version 1)
Quarter: 2021Q2

REPORT INFORMATION
  Report Type: Spontaneous
  Country: US (occurrence: US)
  Receive Date: 20210419
  Receipt Date: 20210419
  Transmission Date: 20210717
  Serious: No
  Sender: FDA-Public Use
  Company Number: US-SERVIER-S21003151

PATIENT

DRUGS (10)
  1. TN UNSPECIFIED [Concomitant]
     Indication: ACUTE LYMPHOCYTIC LEUKAEMIA
     Dosage: 1.6 MG, ONE DOSE
     Route: 042
     Dates: start: 20210322, end: 20210322
  2. TN UNSPECIFIED [Concomitant]
     Indication: PREMEDICATION
     Dosage: 16 MG, ONE DOSE
     Route: 048
     Dates: start: 20210322, end: 20210322
  3. TN UNSPECIFIED [Concomitant]
     Indication: PREMEDICATION
     Dosage: 624 ML, ONE DOSE
     Route: 042
     Dates: start: 20210331, end: 20210331
  4. ONCASPAR [Suspect]
     Active Substance: PEGASPARGASE
     Indication: ACUTE LYMPHOCYTIC LEUKAEMIA
     Dosage: UNK
     Route: 042
  5. TN UNSPECIFIED [Concomitant]
     Indication: PREMEDICATION
     Dosage: 4 MG, ONE DOSE
     Route: 042
     Dates: start: 20210322, end: 20210322
  6. TN UNSPECIFIED [Concomitant]
     Indication: PREMEDICATION
     Dosage: 31 MG, ONE DOSE
     Route: 048
     Dates: start: 20210322, end: 20210322
  7. ONCASPAR [Suspect]
     Active Substance: PEGASPARGASE
     Dosage: 2675 IU, ONE DOSE
     Route: 042
     Dates: start: 20210322, end: 20210322
  8. TN UNSPECIFIED [Concomitant]
     Indication: PREMEDICATION
     Dosage: 31 MG, ONE DOSE
     Route: 042
     Dates: start: 20210322, end: 20210322
  9. TN UNSPECIFIED [Concomitant]
     Indication: ACUTE LYMPHOCYTIC LEUKAEMIA
     Dosage: 12 MG, ONE DOSE
     Route: 037
     Dates: start: 20210322, end: 20210322
  10. TN UNSPECIFIED [Concomitant]
     Indication: PREMEDICATION
     Dosage: 400 MG, ONE DOSE
     Route: 048
     Dates: start: 20210322, end: 20210322

REACTIONS (1)
  - Hypersensitivity [Recovered/Resolved]

NARRATIVE: CASE EVENT DATE: 20210322
